FAERS Safety Report 4683763-X (Version None)
Quarter: 2005Q2

REPORT INFORMATION
  Report Type: 
  Country: None (occurrence: None)
  Receive Date: 20050602
  Receipt Date: 20050301
  Transmission Date: 20051028
  Serious: No
  Sender: FDA-Public Use
  Company Number: 200421226BWH

PATIENT
  Age: 51 Year
  Sex: Male

DRUGS (5)
  1. LEVITRA [Suspect]
     Indication: ERECTILE DYSFUNCTION
     Dosage: SEE IMAGE
     Dates: start: 20041214, end: 20041216
  2. LEVITRA [Suspect]
     Indication: PROSTATITIS
     Dosage: SEE IMAGE
     Dates: start: 20041214, end: 20041216
  3. LEVITRA [Suspect]
     Indication: ERECTILE DYSFUNCTION
     Dosage: SEE IMAGE
     Dates: start: 20041222
  4. LEVITRA [Suspect]
     Indication: PROSTATITIS
     Dosage: SEE IMAGE
     Dates: start: 20041222
  5. VIAGRA [Concomitant]

REACTIONS (1)
  - ERECTILE DYSFUNCTION [None]
